FAERS Safety Report 8592357-5 (Version None)
Quarter: 2012Q3

REPORT INFORMATION
  Report Type: 
  Country: None (occurrence: None)
  Receive Date: 20120814
  Receipt Date: 20120801
  Transmission Date: 20120928
  Serious: No
  Sender: FDA-Public Use
  Company Number: US-ASTRAZENECA-2012SE54378

PATIENT
  Age: 61 Year
  Sex: Female
  Weight: 86.2 kg

DRUGS (5)
  1. SYMBICORT [Suspect]
     Indication: BRONCHITIS
     Dosage: 160/4.5 ONE PUFF TWICE A DAY
     Route: 055
     Dates: start: 20100101
  2. PANTOPRAZOLE [Concomitant]
     Indication: GASTROOESOPHAGEAL REFLUX DISEASE
  3. AMBIEN [Concomitant]
  4. BENICAR [Concomitant]
     Indication: HYPERTENSION
  5. NITROGLYCERIN [Concomitant]

REACTIONS (2)
  - EMPHYSEMA [None]
  - WEIGHT INCREASED [None]
